FAERS Safety Report 9186977 (Version 1)
Quarter: 2013Q1

REPORT INFORMATION
  Report Type: Spontaneous
  Country: CL (occurrence: CL)
  Receive Date: 20130325
  Receipt Date: 20130325
  Transmission Date: 20140127
  Serious: Yes (Other)
  Sender: FDA-Public Use
  Company Number: CL-BRISTOL-MYERS SQUIBB COMPANY-18694851

PATIENT
  Age: 1 Day
  Sex: Male
  Weight: 2.2 kg

DRUGS (5)
  1. ORENCIA [Suspect]
     Dosage: INFANT^S MOTHER WAS RECEIVING 500 MG,IV FROM OCT-2011 TO 20-APR-2012.
     Route: 064
  2. PREDNISONE [Concomitant]
  3. EUTIROX [Concomitant]
  4. CONFER [Concomitant]
     Dosage: 1 DF:1 UNITS NOS
  5. CAPRIMIDA [Concomitant]
     Dosage: 1DF:1 UNIT NOS

REACTIONS (2)
  - Premature baby [Unknown]
  - Small for dates baby [Unknown]
